FAERS Safety Report 8275358-6 (Version None)
Quarter: 2012Q2

REPORT INFORMATION
  Report Type: 
  Country: None (occurrence: None)
  Receive Date: 20120411
  Receipt Date: 20120404
  Transmission Date: 20120825
  Serious: Yes (Other)
  Sender: FDA-Public Use
  Company Number: CA-BAYER-2012-034918

PATIENT

DRUGS (1)
  1. CIPROFLOXACIN HCL [Suspect]
     Route: 048

REACTIONS (1)
  - RETINAL DETACHMENT [None]
